FAERS Safety Report 7732489-4 (Version None)
Quarter: 2011Q3

REPORT INFORMATION
  Report Type: 
  Country: None (occurrence: None)
  Receive Date: 20110906
  Receipt Date: 20110827
  Transmission Date: 20111222
  Serious: Yes (Hospitalization)
  Sender: FDA-Public Use
  Company Number: BR-ASTRAZENECA-2011SE52014

PATIENT
  Age: 54 Year
  Sex: Female

DRUGS (3)
  1. UNKNOWN [Suspect]
  2. ATACAND [Suspect]
     Indication: HYPERTENSION
     Route: 048
     Dates: end: 20110301
  3. LEVOTHYROXINE SODIUM [Concomitant]
     Route: 048

REACTIONS (3)
  - BLOOD PRESSURE INADEQUATELY CONTROLLED [None]
  - DRUG INEFFECTIVE [None]
  - DIABETES MELLITUS INADEQUATE CONTROL [None]
